FAERS Safety Report 17562483 (Version 2)
Quarter: 2020Q4

REPORT INFORMATION
  Report Type: Report from Study
  Country: US (occurrence: US)
  Receive Date: 20200319
  Receipt Date: 20201104
  Transmission Date: 20210113
  Serious: Yes (Life-Threatening, Other)
  Sender: FDA-Public Use
  Company Number: NVSC2020US078226

PATIENT
  Age: 23 Year
  Sex: Male

DRUGS (1)
  1. KYMRIAH [Suspect]
     Active Substance: TISAGENLECLEUCEL
     Indication: PRIMARY MEDIASTINAL LARGE B-CELL LYMPHOMA
     Dosage: UNK
     Route: 042
     Dates: start: 20190712

REACTIONS (12)
  - Primary mediastinal large B-cell lymphoma [Unknown]
  - Haematocrit decreased [Unknown]
  - Enterococcal infection [Unknown]
  - Malignant neoplasm progression [Unknown]
  - Hypogammaglobulinaemia [Recovered/Resolved]
  - Lymphocyte count decreased [Unknown]
  - Platelet count decreased [Recovered/Resolved]
  - Neutrophil count decreased [Recovered/Resolved]
  - White blood cell count decreased [Unknown]
  - Haemoglobin decreased [Unknown]
  - Human herpesvirus 6 infection [Unknown]
  - BK virus infection [Unknown]
